FAERS Safety Report 5599015-X (Version None)
Quarter: 2008Q1

REPORT INFORMATION
  Report Type: 
  Country: None (occurrence: None)
  Receive Date: 20080122
  Receipt Date: 20080116
  Transmission Date: 20080703
  Serious: Yes (Other)
  Sender: FDA-Public Use
  Company Number: AU-BOEHRINGER INGELHEIM PHARMACEUTICALS, INC.-2008-DE-00299GD

PATIENT

DRUGS (3)
  1. NEVIRAPINE [Suspect]
     Indication: HIV INFECTION
  2. D4T [Suspect]
     Indication: HIV INFECTION
  3. 3TC [Suspect]
     Indication: HIV INFECTION

REACTIONS (5)
  - HEPATITIS [None]
  - HYPERLACTACIDAEMIA [None]
  - LACTIC ACIDOSIS [None]
  - LIPOATROPHY [None]
  - RASH [None]
